FAERS Safety Report 4287122-3 (Version None)
Quarter: 2004Q1

REPORT INFORMATION
  Report Type: 
  Country: None (occurrence: None)
  Receive Date: 20040205
  Receipt Date: 20040116
  Transmission Date: 20041129
  Serious: Yes (Other)
  Sender: FDA-Public Use
  Company Number: JP_040102521

PATIENT
  Sex: Male

DRUGS (6)
  1. GEMZAR [Suspect]
     Indication: PANCREATIC CARCINOMA
  2. CAMPTOSAR [Concomitant]
  3. 5-FU  PANCREATIC CARCINOMA [Concomitant]
  4. ISOVORIN (CALCIUM LEVOFOLINATE) [Concomitant]
  5. PARAPLATIN [Concomitant]
  6. TAXOTERE [Concomitant]

REACTIONS (1)
  - NEUROPATHY PERIPHERAL [None]
